FAERS Safety Report 25360640 (Version 2)
Quarter: 2025Q4

REPORT INFORMATION
  Report Type: Spontaneous
  Country: US (occurrence: US)
  Receive Date: 20250527
  Receipt Date: 20251024
  Transmission Date: 20260118
  Serious: Yes (Hospitalization, Other)
  Sender: COOPERSURGICAL
  Company Number: US-COOPERSURGICAL, INC.-2025CPS004101

PATIENT
  Age: 34 Year
  Sex: Female
  Weight: 65.76 kg

DRUGS (3)
  1. PARAGARD T 380A [Suspect]
     Active Substance: COPPER
     Indication: Contraception
     Dosage: UNK
     Route: 015
     Dates: start: 20060927
  2. TRAZODONE [Concomitant]
     Active Substance: TRAZODONE HYDROCHLORIDE
     Dosage: UNK
     Dates: start: 200201
  3. ZOLOFT [Concomitant]
     Active Substance: SERTRALINE HYDROCHLORIDE
     Dosage: UNK
     Dates: start: 200301

REACTIONS (25)
  - Acute abdomen [Recovered/Resolved]
  - Leukocytosis [Recovered/Resolved]
  - Reproductive complication associated with device [Not Recovered/Not Resolved]
  - Infertility female [Not Recovered/Not Resolved]
  - Ovarian cyst [Unknown]
  - Fallopian tube disorder [Unknown]
  - Adhesiolysis [Recovered/Resolved]
  - Laparotomy [Recovered/Resolved]
  - Device dislocation [Not Recovered/Not Resolved]
  - Device breakage [Not Recovered/Not Resolved]
  - Foreign body in urogenital tract [Not Recovered/Not Resolved]
  - Complication of device removal [Not Recovered/Not Resolved]
  - Uterine perforation [Recovered/Resolved]
  - Pelvic abscess [Recovered/Resolved]
  - Pelvic adhesions [Recovered/Resolved]
  - Abdominal adhesions [Recovered/Resolved]
  - Pelvic fluid collection [Recovered/Resolved]
  - Fallopian tube enlargement [Unknown]
  - Pleural effusion [Unknown]
  - Atelectasis [Unknown]
  - Lung infiltration [Unknown]
  - Depression [Unknown]
  - Anaemia [Unknown]
  - Pain [Unknown]
  - Discomfort [Unknown]

NARRATIVE: CASE EVENT DATE: 20160701
